FAERS Safety Report 6415103-X (Version None)
Quarter: 2009Q4

REPORT INFORMATION
  Report Type: 
  Country: None (occurrence: None)
  Receive Date: 20091027
  Receipt Date: 20091023
  Transmission Date: 20100525
  Serious: Yes (Other)
  Sender: FDA-Public Use
  Company Number: US-ASTRAZENECA-2007UW23384

PATIENT
  Age: 17403 Day
  Sex: Female
  Weight: 55.8 kg

DRUGS (36)
  1. SEROQUEL [Suspect]
     Indication: BIPOLAR DISORDER
     Route: 048
     Dates: start: 20020101
  2. SEROQUEL [Suspect]
     Indication: DEPRESSION
     Route: 048
     Dates: start: 20020101
  3. SEROQUEL [Suspect]
     Route: 048
     Dates: start: 20031215
  4. SEROQUEL [Suspect]
     Route: 048
     Dates: start: 20031215
  5. SEROQUEL [Suspect]
     Route: 048
     Dates: start: 20040106
  6. SEROQUEL [Suspect]
     Route: 048
     Dates: start: 20040106
  7. LISINOPRIL [Concomitant]
     Indication: HYPERTENSION
     Dates: start: 20081212
  8. LISINOPRIL [Concomitant]
     Dosage: 5-10 MG
  9. LISINOPRIL [Concomitant]
     Dates: start: 20050120
  10. MORPHINE SULFATE [Concomitant]
  11. NORVASC [Concomitant]
  12. LIPITOR [Concomitant]
     Dates: start: 20081212
  13. LIPITOR [Concomitant]
     Dosage: 5-20 MG
  14. LANTUS/LANTUS INSULIN [Concomitant]
     Indication: DIABETES MELLITUS
     Dosage: 27-100 UNITS/ML
  15. LANTUS/LANTUS INSULIN [Concomitant]
     Dosage: 28 UNITS
     Dates: start: 20050120
  16. EFFEXOR XR [Concomitant]
     Indication: DEPRESSION
     Dosage: 37.5MG, 75MG, 150MG DAILY
     Dates: start: 20031215
  17. EFFEXOR XR [Concomitant]
     Dosage: 75-150 MG
  18. EFFEXOR XR [Concomitant]
     Dates: start: 20050120
  19. GABAPENTIN [Concomitant]
  20. HUMALOG [Concomitant]
     Dosage: 100 UNITS/ML
  21. AMBIEN [Concomitant]
     Dates: start: 20020730
  22. AMBIEN [Concomitant]
  23. OXYCODONE HCL [Concomitant]
  24. DEPAKOTE [Concomitant]
     Dates: start: 20020730
  25. LORAZEPAM [Concomitant]
     Dates: start: 20081212
  26. PLAVIX [Concomitant]
     Dates: start: 20081212
  27. INSULIN [Concomitant]
     Dates: start: 20081212
  28. WELLBUTRIN [Concomitant]
     Dates: start: 20020730
  29. HUMULIN R [Concomitant]
     Indication: DIABETES MELLITUS
     Dates: start: 20050120
  30. DURAGESIC-100 [Concomitant]
     Indication: NECK PAIN
     Dosage: 100 MG 1 PATCH FOR 72 HRS
     Dates: start: 20050120
  31. DURAGESIC-100 [Concomitant]
     Indication: PAIN IN EXTREMITY
     Dosage: 100 MG 1 PATCH FOR 72 HRS
     Dates: start: 20050120
  32. DURAGESIC-100 [Concomitant]
     Indication: BACK PAIN
     Dosage: 100 MG 1 PATCH FOR 72 HRS
     Dates: start: 20050120
  33. ROXICET [Concomitant]
     Indication: NECK PAIN
     Dosage: 5/325 1 PILL UP TO 3 TIMES A DAY
     Dates: start: 20050120
  34. ROXICET [Concomitant]
     Indication: PAIN IN EXTREMITY
     Dosage: 5/325 1 PILL UP TO 3 TIMES A DAY
     Dates: start: 20050120
  35. ROXICET [Concomitant]
     Indication: BACK PAIN
     Dosage: 5/325 1 PILL UP TO 3 TIMES A DAY
     Dates: start: 20050120
  36. CAPSAICIN [Concomitant]
     Indication: NEURALGIA
     Dates: start: 20050201

REACTIONS (5)
  - DIABETES MELLITUS [None]
  - DIABETES MELLITUS INADEQUATE CONTROL [None]
  - DIABETIC COMA [None]
  - DIABETIC NEUROPATHY [None]
  - KETOACIDOSIS [None]
